FAERS Safety Report 7288497-3 (Version None)
Quarter: 2011Q1

REPORT INFORMATION
  Report Type: 
  Country: None (occurrence: None)
  Receive Date: 20110211
  Receipt Date: 20110201
  Transmission Date: 20110831
  Serious: Yes (Hospitalization)
  Sender: FDA-Public Use
  Company Number: Z0002047A

PATIENT
  Sex: Female
  Weight: 42 kg

DRUGS (15)
  1. LIPIDIL [Concomitant]
     Dosage: 1CAP IN THE MORNING
     Route: 048
     Dates: start: 20050622, end: 20091223
  2. SYMMETREL [Concomitant]
     Dosage: 1TAB THREE TIMES PER DAY
     Route: 048
     Dates: start: 20091119, end: 20091223
  3. GLIMICRON [Concomitant]
     Indication: DIABETES MELLITUS
     Route: 048
     Dates: start: 20090410, end: 20091024
  4. KARY UNI [Concomitant]
     Indication: CATARACT
     Dosage: 1DROP FOUR TIMES PER DAY
     Route: 047
     Dates: end: 20091020
  5. GASTER D [Concomitant]
     Indication: GASTRITIS PROPHYLAXIS
     Dosage: 1TAB AT NIGHT
     Route: 048
     Dates: start: 20040729, end: 20091223
  6. HYPADIL [Concomitant]
     Indication: OCULAR HYPERTENSION
     Dosage: 1DROP TWICE PER DAY
     Route: 047
     Dates: end: 20091020
  7. MOHRUS TAPE [Concomitant]
     Dosage: 1PAT PER DAY
     Route: 061
     Dates: start: 20090925, end: 20091223
  8. MAGLAX [Concomitant]
     Indication: CONSTIPATION
     Dosage: 1TAB THREE TIMES PER DAY
     Route: 048
     Dates: start: 20000523, end: 20091223
  9. DIART [Concomitant]
     Indication: CARDIAC FAILURE
     Dosage: .5TAB IN THE MORNING
     Route: 048
     Dates: start: 20090204, end: 20091223
  10. BLOPRESS [Concomitant]
     Indication: HYPERTENSION
     Dosage: 1TAB IN THE MORNING
     Route: 048
     Dates: start: 20090924, end: 20091021
  11. PAZOPANIB [Suspect]
     Indication: RENAL CELL CARCINOMA
     Dosage: 800MG PER DAY
     Route: 048
     Dates: start: 20090907, end: 20091013
  12. ASPIRIN [Concomitant]
     Dosage: 1TAB IN THE MORNING
     Route: 048
     Dates: start: 20080314, end: 20091223
  13. XALATAN [Concomitant]
     Indication: OCULAR HYPERTENSION
     Dosage: 1DROP AT NIGHT
     Route: 047
     Dates: end: 20091020
  14. SYMMETREL [Concomitant]
     Indication: PARKINSONISM
     Dosage: 1TAB TWICE PER DAY
     Route: 048
     Dates: start: 20090917, end: 20091118
  15. UREPEARL [Concomitant]
     Indication: DRY SKIN
     Route: 062
     Dates: start: 20090831, end: 20091223

REACTIONS (1)
  - CARDIAC FAILURE CONGESTIVE [None]
